FAERS Safety Report 4893076-9 (Version None)
Quarter: 2005Q4

REPORT INFORMATION
  Report Type: 
  Country: None (occurrence: None)
  Receive Date: 20051223
  Receipt Date: 20051129
  Transmission Date: 20060501
  Serious: Yes (Death)
  Sender: FDA-Public Use
  Company Number: 218527

PATIENT
  Sex: 0

DRUGS (2)
  1. AVASTIN [Suspect]
     Indication: NON-SMALL CELL LUNG CANCER
  2. ALIMTA [Concomitant]

REACTIONS (1)
  - HAEMORRHAGE [None]
